FAERS Safety Report 8553350-1 (Version None)
Quarter: 2012Q3

REPORT INFORMATION
  Report Type: 
  Country: None (occurrence: None)
  Receive Date: 20120731
  Receipt Date: 20120717
  Transmission Date: 20120928
  Serious: Yes (Hospitalization)
  Sender: FDA-Public Use
  Company Number: FR-ROCHE-1089407

PATIENT
  Sex: Female

DRUGS (3)
  1. VALGANCICLOVIR [Suspect]
     Indication: PRODUCT USED FOR UNKNOWN INDICATION
     Dates: end: 20110903
  2. BACTRIM DS [Suspect]
     Indication: ANTIFUNGAL PROPHYLAXIS
     Dates: end: 20110903
  3. INVANZ [Suspect]
     Indication: PRODUCT USED FOR UNKNOWN INDICATION
     Route: 042
     Dates: end: 20110903

REACTIONS (6)
  - HALLUCINATION, VISUAL [None]
  - CEREBELLAR SYNDROME [None]
  - CONFUSIONAL STATE [None]
  - GAIT DISTURBANCE [None]
  - HALLUCINATION, AUDITORY [None]
  - DISORIENTATION [None]
